FAERS Safety Report 20391187 (Version 1)
Quarter: 2022Q1

REPORT INFORMATION
  Report Type: Spontaneous
  Country: US (occurrence: US)
  Receive Date: 20220128
  Receipt Date: 20220128
  Transmission Date: 20220423
  Serious: No
  Sender: FDA-Public Use
  Company Number: US-ALLERGAN-2112953US

PATIENT
  Sex: Male

DRUGS (1)
  1. FLUOROMETHOLONE [Suspect]
     Active Substance: FLUOROMETHOLONE
     Indication: Eye irritation
     Dosage: 2 GTT, TID
     Route: 047
     Dates: start: 20210320

REACTIONS (2)
  - Blood pressure fluctuation [Unknown]
  - Malaise [Unknown]
